FAERS Safety Report 7674778-8 (Version None)
Quarter: 2011Q3

REPORT INFORMATION
  Report Type: 
  Country: None (occurrence: None)
  Receive Date: 20110810
  Receipt Date: 20110804
  Transmission Date: 20111222
  Serious: Yes (Hospitalization)
  Sender: FDA-Public Use
  Company Number: GB-GLAXOSMITHKLINE-B0732623A

PATIENT
  Sex: Female

DRUGS (3)
  1. ACYCLOVIR [Suspect]
     Indication: EPSTEIN-BARR VIRAEMIA
  2. COD LIVER OIL [Suspect]
  3. CENTRUM [Suspect]

REACTIONS (2)
  - CONVULSION [None]
  - EPSTEIN-BARR VIRUS INFECTION [None]
